FAERS Safety Report 25620420 (Version 2)
Quarter: 2025Q3

REPORT INFORMATION
  Report Type: Spontaneous
  Country: EU (occurrence: EU)
  Receive Date: 20250730
  Receipt Date: 20250828
  Transmission Date: 20251020
  Serious: Yes (Disabling)
  Sender: AUROBINDO
  Company Number: EU-INFARMED-T202507-1015

PATIENT
  Age: 43 Year
  Sex: Male

DRUGS (5)
  1. FLUOXETINE [Suspect]
     Active Substance: FLUOXETINE HYDROCHLORIDE
     Indication: Persistent depressive disorder
     Route: 048
     Dates: start: 20200212, end: 202401
  2. FLUOXETINE [Suspect]
     Active Substance: FLUOXETINE HYDROCHLORIDE
     Indication: Depression
     Route: 048
     Dates: start: 202412, end: 202503
  3. FLUOXETINE [Suspect]
     Active Substance: FLUOXETINE HYDROCHLORIDE
     Route: 048
     Dates: start: 202505, end: 202507
  4. PANTOPRAZOLE SODIUM [Concomitant]
     Active Substance: PANTOPRAZOLE SODIUM
     Indication: Product used for unknown indication
     Route: 065
  5. TRAZODONE [Concomitant]
     Active Substance: TRAZODONE HYDROCHLORIDE
     Indication: Product used for unknown indication
     Route: 065

REACTIONS (6)
  - Back pain [Recovered/Resolved]
  - Male orgasmic disorder [Unknown]
  - Tinnitus [Recovered/Resolved]
  - Dysuria [Recovered/Resolved]
  - Peripheral vascular disorder [Recovered/Resolved]
  - Ejaculation delayed [Recovered/Resolved]

NARRATIVE: CASE EVENT DATE: 20200101
